FAERS Safety Report 7731811-2 (Version None)
Quarter: 2011Q3

REPORT INFORMATION
  Report Type: 
  Country: None (occurrence: None)
  Receive Date: 20110906
  Receipt Date: 20110705
  Transmission Date: 20111222
  Serious: No
  Sender: FDA-Public Use
  Company Number: US-AMGEN-USASP2011034159

PATIENT
  Sex: Female

DRUGS (1)
  1. PROLIA [Suspect]
     Indication: OSTEOPOROSIS POSTMENOPAUSAL
     Dosage: 60 MG, Q6MO

REACTIONS (9)
  - GINGIVAL SWELLING [None]
  - ARTHRALGIA [None]
  - PAIN IN EXTREMITY [None]
  - MALAISE [None]
  - LIP DISORDER [None]
  - BLADDER PAIN [None]
  - OEDEMA PERIPHERAL [None]
  - BACK PAIN [None]
  - CONSTIPATION [None]
